FAERS Safety Report 14923018 (Version 1)
Quarter: 2018Q2

REPORT INFORMATION
  Report Type: Spontaneous
  Country: US (occurrence: US)
  Receive Date: 20180503
  Receipt Date: 20180503
  Transmission Date: 20180711
  Serious: Yes (Disabling)
  Sender: FDA-Public Use
  Company Number: None

PATIENT
  Age: 69 Year
  Sex: Male
  Weight: 96.75 kg

DRUGS (13)
  1. MULTIPLE VITAMIN [Concomitant]
     Active Substance: VITAMINS
  2. ANDROGEL [Concomitant]
     Active Substance: TESTOSTERONE
  3. E [Concomitant]
  4. VITAMIN C [Concomitant]
     Active Substance: ASCORBIC ACID
  5. FISH OIL [Concomitant]
     Active Substance: FISH OIL
  6. VITAMIN B12 [Concomitant]
     Active Substance: CYANOCOBALAMIN
  7. BETA-CAROTENE [Concomitant]
  8. PRALUENT [Suspect]
     Active Substance: ALIROCUMAB
     Indication: HYPERCHOLESTEROLAEMIA
     Dosage: ?          QUANTITY:4 INJECTION(S);OTHER FREQUENCY:EVEY TWO WEEKS;?
     Route: 058
     Dates: start: 20160929, end: 20161020
  9. TEKTURNA [Concomitant]
     Active Substance: ALISKIREN HEMIFUMARATE
  10. ASA [Concomitant]
     Active Substance: ASPIRIN
  11. CO-Q10 [Concomitant]
  12. BRILINTA [Concomitant]
     Active Substance: TICAGRELOR
  13. D-3 [Concomitant]
     Active Substance: CHOLECALCIFEROL

REACTIONS (3)
  - Myalgia [None]
  - Arthralgia [None]
  - Rhabdomyolysis [None]

NARRATIVE: CASE EVENT DATE: 20161020
